FAERS Safety Report 6609415-4 (Version None)
Quarter: 2010Q1

REPORT INFORMATION
  Report Type: 
  Country: None (occurrence: None)
  Receive Date: 20100224
  Receipt Date: 20100215
  Transmission Date: 20100710
  Serious: Yes (Hospitalization)
  Sender: FDA-Public Use
  Company Number: B0634989A

PATIENT
  Age: 64 Year
  Sex: Male

DRUGS (8)
  1. AMOXICILLIN TRIHYDRATE [Suspect]
     Indication: HELICOBACTER INFECTION
     Dosage: 1 GRAM (S) / TWICE PER DAY /
  2. CLARITHROMYCIN [Suspect]
     Indication: HELICOBACTER INFECTION
     Dosage: 500 MG / TWICE PER DAY /
  3. BETAHISTINE [Concomitant]
  4. ALLOPURINOL [Concomitant]
  5. CARVEDILOL [Concomitant]
  6. VALSARTAN [Concomitant]
  7. HYDROCHLOROTHIAZIDE [Concomitant]
  8. PANTOPRAZOLE [Concomitant]

REACTIONS (12)
  - BILIARY TRACT DISORDER [None]
  - CHOLANGITIS [None]
  - CHOLECYSTITIS ACUTE [None]
  - DRY MOUTH [None]
  - FEELING ABNORMAL [None]
  - GASTRITIS [None]
  - HEPATIC STEATOSIS [None]
  - HEPATITIS CHOLESTATIC [None]
  - PAIN [None]
  - PANCREATIC CYST [None]
  - PANCREATIC DISORDER [None]
  - THROAT IRRITATION [None]
